FAERS Safety Report 25170942 (Version 1)
Quarter: 2025Q2

REPORT INFORMATION
  Report Type: Spontaneous
  Country: DE (occurrence: DE)
  Receive Date: 20250408
  Receipt Date: 20250408
  Transmission Date: 20250716
  Serious: Yes (Other)
  Sender: STALLERGENES
  Company Number: DE-STALCOR-2025-AER-00841

PATIENT
  Age: 14 Year
  Sex: Male
  Weight: 43.8 kg

DRUGS (4)
  1. ORALAIR [Suspect]
     Active Substance: ANTHOXANTHUM ODORATUM POLLEN\DACTYLIS GLOMERATA POLLEN\LOLIUM PERENNE POLLEN\PHLEUM PRATENSE POLLEN\
     Indication: Seasonal allergy
     Route: 060
     Dates: start: 20241217
  2. ORALAIR [Suspect]
     Active Substance: ANTHOXANTHUM ODORATUM POLLEN\DACTYLIS GLOMERATA POLLEN\LOLIUM PERENNE POLLEN\PHLEUM PRATENSE POLLEN\
     Route: 060
     Dates: start: 20250206, end: 20250213
  3. Viani 25 ?g/250 ?g [Concomitant]
     Indication: Asthma
     Dates: start: 20221101
  4. Viani 25 ?g/250 ?g [Concomitant]
     Dates: start: 20210302, end: 20221101

REACTIONS (3)
  - Superinfection [Recovered/Resolved]
  - Condition aggravated [Recovered/Resolved]
  - Rash [Recovered/Resolved]

NARRATIVE: CASE EVENT DATE: 20241225
